FAERS Safety Report 8503378-2 (Version None)
Quarter: 2012Q3

REPORT INFORMATION
  Report Type: 
  Country: None (occurrence: None)
  Receive Date: 20120711
  Receipt Date: 20120709
  Transmission Date: 20120928
  Serious: No
  Sender: FDA-Public Use
  Company Number: US-PFIZER INC-2012127274

PATIENT
  Sex: Female
  Weight: 54 kg

DRUGS (5)
  1. NEURONTIN [Suspect]
     Dosage: UNK
     Route: 048
     Dates: start: 20010101
  2. TOPROL-XL [Concomitant]
     Indication: HYPERTENSION
     Dosage: UNK
     Dates: start: 20120401
  3. OXYCONTIN [Concomitant]
     Indication: PAIN
     Dosage: 40 MG, 3X/DAY
     Dates: start: 20010101
  4. CELEBREX [Concomitant]
     Indication: ARTHRITIS
     Dosage: UNK
     Dates: start: 20010101
  5. NEURONTIN [Suspect]
     Dosage: TWO CAPSULES OF 800 MG
     Route: 048

REACTIONS (7)
  - TERMINAL INSOMNIA [None]
  - HYPOAESTHESIA [None]
  - DRUG INEFFECTIVE [None]
  - MUSCLE SPASMS [None]
  - MUSCULAR WEAKNESS [None]
  - BURNING SENSATION [None]
  - MUSCULOSKELETAL STIFFNESS [None]
